FAERS Safety Report 7858374-5 (Version None)
Quarter: 2011Q4

REPORT INFORMATION
  Report Type: 
  Country: None (occurrence: None)
  Receive Date: 20111027
  Receipt Date: 20110321
  Transmission Date: 20120403
  Serious: Yes (Other)
  Sender: FDA-Public Use
  Company Number: US-BAYER-2010-001598

PATIENT
  Sex: Female

DRUGS (8)
  1. INDOMETHACIN [Concomitant]
  2. HYDROCODONE W/ACETYLSALICYLIC ACID [Concomitant]
  3. YASMIN [Suspect]
     Indication: PRODUCT USED FOR UNKNOWN INDICATION
     Route: 048
  4. TAMIFLU [Concomitant]
  5. BUSPIRONE [Concomitant]
     Dosage: 15 MG, BID
  6. AZITHROMYCIN [Concomitant]
  7. BUPROPION HCL [Concomitant]
     Dosage: 100 MG, BID
  8. YAZ [Suspect]
     Indication: PREMENSTRUAL SYNDROME

REACTIONS (5)
  - CHOLELITHIASIS [None]
  - CHOLECYSTITIS [None]
  - GALLBLADDER DISORDER [None]
  - GALLBLADDER INJURY [None]
  - MULTIPLE INJURIES [None]
